FAERS Safety Report 21324465 (Version 1)
Quarter: 2022Q3

REPORT INFORMATION
  Report Type: Spontaneous
  Country: US (occurrence: None)
  Receive Date: 20220911
  Receipt Date: 20220911
  Transmission Date: 20221027
  Serious: Yes (Other)
  Sender: FDA-Public Use
  Company Number: None

PATIENT
  Age: 40 Year
  Sex: Female
  Weight: 76.5 kg

DRUGS (9)
  1. CETIRIZINE HYDROCHLORIDE [Suspect]
     Active Substance: CETIRIZINE HYDROCHLORIDE
     Indication: Urticaria
     Dosage: OTHER QUANTITY : 1 TABLET(S);?
     Route: 048
     Dates: start: 20220301
  2. METHIMAZOLE [Concomitant]
     Active Substance: METHIMAZOLE
  3. larin [Concomitant]
  4. TEPEZZA [Concomitant]
     Active Substance: TEPROTUMUMAB-TRBW
  5. VITAMINS [Concomitant]
     Active Substance: VITAMINS
  6. KRILL OIL [Concomitant]
  7. SELENIUM [Concomitant]
     Active Substance: SELENIUM
  8. LEVOCARNITINE [Concomitant]
     Active Substance: LEVOCARNITINE
  9. COENZYME Q10 [Concomitant]
     Active Substance: DIETARY SUPPLEMENT\UBIDECARENONE

REACTIONS (5)
  - Pruritus [None]
  - Withdrawal syndrome [None]
  - Pruritus [None]
  - Pruritus [None]
  - Pruritus [None]

NARRATIVE: CASE EVENT DATE: 20220911
